FAERS Safety Report 23841554 (Version 1)
Quarter: 2024Q2

REPORT INFORMATION
  Report Type: Spontaneous
  Country: US (occurrence: None)
  Receive Date: 20240509
  Receipt Date: 20240509
  Transmission Date: 20240716
  Serious: Yes (Death, Hospitalization)
  Sender: FDA-Public Use
  Company Number: None

PATIENT
  Age: 56 Year
  Sex: Male
  Weight: 85 kg

DRUGS (1)
  1. GADOBENATE DIMEGLUMINE [Suspect]
     Active Substance: GADOBENATE DIMEGLUMINE
     Indication: Scan with contrast
     Dosage: FREQUENCY : ONCE;?
     Route: 042
     Dates: start: 20230324, end: 20230324

REACTIONS (8)
  - Anaphylactic reaction [None]
  - Paraesthesia [None]
  - Vomiting [None]
  - Sepsis [None]
  - Pneumonia [None]
  - Cerebral ischaemia [None]
  - Central nervous system injury [None]
  - Circulatory collapse [None]

NARRATIVE: CASE EVENT DATE: 20240324
